FAERS Safety Report 9562120 (Version 2)
Quarter: 2013Q3

REPORT INFORMATION
  Report Type: Spontaneous
  Country: US (occurrence: US)
  Receive Date: 20130927
  Receipt Date: 20130927
  Transmission Date: 20140515
  Serious: Yes (Hospitalization)
  Sender: FDA-Public Use
  Company Number: US-JNJFOC-20130800697

PATIENT
  Age: 81 Year
  Sex: Male
  Weight: 115 kg

DRUGS (2)
  1. XARELTO [Suspect]
     Indication: CEREBROVASCULAR ACCIDENT PROPHYLAXIS
     Dosage: 8 AM
     Route: 048
     Dates: end: 20130429
  2. XARELTO [Suspect]
     Indication: ATRIAL FIBRILLATION
     Dosage: 8 AM
     Route: 048
     Dates: end: 20130429

REACTIONS (2)
  - Gastrointestinal haemorrhage [Recovered/Resolved]
  - Inappropriate schedule of drug administration [Unknown]
